FAERS Safety Report 23401308 (Version 2)
Quarter: 2024Q2

REPORT INFORMATION
  Report Type: Spontaneous
  Country: US (occurrence: None)
  Receive Date: 20240115
  Receipt Date: 20240515
  Transmission Date: 20240715
  Serious: No
  Sender: FDA-Public Use
  Company Number: 2024A010142

PATIENT
  Sex: Male

DRUGS (3)
  1. BEYFORTUS [Suspect]
     Active Substance: NIRSEVIMAB-ALIP
     Indication: Antiviral prophylaxis
     Dosage: 0.5 ML, TOTAL
  2. BEYFORTUS [Suspect]
     Active Substance: NIRSEVIMAB-ALIP
     Indication: Antiviral prophylaxis
     Dosage: 1 ML, TOTAL
     Route: 030
  3. FLUZONE [Concomitant]
     Active Substance: INFLUENZA A VIRUS A/CALIFORNIA/7/2009 X-179A (H1N1) ANTIGEN (FORMALDEHYDE INACTIVATED)\INFLUENZA A V
     Indication: Immunisation
     Dosage: UNK

REACTIONS (3)
  - Poor feeding infant [Unknown]
  - Poor feeding infant [Unknown]
  - Food refusal [Unknown]
